FAERS Safety Report 17571016 (Version 1)
Quarter: 2020Q1

REPORT INFORMATION
  Report Type: Spontaneous
  Country: US (occurrence: US)
  Receive Date: 20200323
  Receipt Date: 20200323
  Transmission Date: 20200409
  Serious: No
  Sender: FDA-Public Use
  Company Number: US-009507513-2003USA006762

PATIENT
  Sex: Male

DRUGS (3)
  1. HALCION [Suspect]
     Active Substance: TRIAZOLAM
     Indication: INSOMNIA
     Dosage: 2.5 MILLIGRAM, UNK
     Dates: start: 2004, end: 201907
  2. HALCION [Suspect]
     Active Substance: TRIAZOLAM
     Dosage: 2.5 MILLIGRAM, UNK
     Dates: start: 201909, end: 202003
  3. BELSOMRA [Suspect]
     Active Substance: SUVOREXANT
     Indication: INSOMNIA
     Dosage: 1 TABLET AT NIGHT
     Route: 048
     Dates: start: 201907, end: 201909

REACTIONS (1)
  - Drug ineffective [Not Recovered/Not Resolved]

NARRATIVE: CASE EVENT DATE: 2019
